FAERS Safety Report 25480600 (Version 4)
Quarter: 2025Q3

REPORT INFORMATION
  Report Type: Spontaneous
  Country: CA (occurrence: CA)
  Receive Date: 20250625
  Receipt Date: 20250828
  Transmission Date: 20251021
  Serious: Yes (Other)
  Sender: PFIZER
  Company Number: CA-PFIZER INC-202500127825

PATIENT
  Age: 78 Year
  Sex: Female

DRUGS (2)
  1. ABRILADA [Suspect]
     Active Substance: ADALIMUMAB-AFZB
     Indication: Crohn^s disease
     Route: 058
     Dates: start: 20220525
  2. ABRILADA [Suspect]
     Active Substance: ADALIMUMAB-AFZB
     Route: 058
     Dates: start: 202506

REACTIONS (8)
  - Condition aggravated [Unknown]
  - Pyoderma gangrenosum [Unknown]
  - Uveitis [Unknown]
  - Arthralgia [Unknown]
  - Erythema nodosum [Unknown]
  - Aphthous ulcer [Unknown]
  - Anal fissure [Unknown]
  - Abscess [Unknown]

NARRATIVE: CASE EVENT DATE: 20250622
